FAERS Safety Report 8965686 (Version 1)
Quarter: 2012Q4

REPORT INFORMATION
  Report Type: Spontaneous
  Country: US (occurrence: None)
  Receive Date: 20121212
  Receipt Date: 20121212
  Transmission Date: 20130627
  Serious: Yes (Disabling)
  Sender: FDA-Public Use
  Company Number: None

PATIENT
  Age: 37 Year
  Sex: Male
  Weight: 88.45 kg

DRUGS (1)
  1. PROPECIA MERCK [Suspect]
     Indication: HAIR LOSS
     Dates: start: 19981230, end: 20061201

REACTIONS (8)
  - Erectile dysfunction [None]
  - Testicular pain [None]
  - Libido decreased [None]
  - Emotional disorder [None]
  - Depression [None]
  - Penis disorder [None]
  - Memory impairment [None]
  - Mental impairment [None]
